FAERS Safety Report 19358929 (Version 5)
Quarter: 2021Q3

REPORT INFORMATION
  Report Type: Spontaneous
  Country: HR (occurrence: HR)
  Receive Date: 20210601
  Receipt Date: 20210906
  Transmission Date: 20211014
  Serious: Yes (Other)
  Sender: FDA-Public Use
  Company Number: NVSC2021HR120489

PATIENT
  Age: 48 Year
  Sex: Female

DRUGS (6)
  1. RIBOCICLIB. [Suspect]
     Active Substance: RIBOCICLIB
     Indication: HORMONE RECEPTOR POSITIVE HER2 NEGATIVE BREAST CANCER
     Dosage: 600 MG
     Route: 048
     Dates: start: 20190621
  2. ZOLEDRONIC ACID [Suspect]
     Active Substance: ZOLEDRONIC ACID
     Indication: HORMONE RECEPTOR POSITIVE HER2 NEGATIVE BREAST CANCER
     Dosage: 4 MG, Q4W
     Route: 042
     Dates: start: 20190621
  3. LETROZOLE. [Suspect]
     Active Substance: LETROZOLE
     Indication: HORMONE RECEPTOR POSITIVE HER2 NEGATIVE BREAST CANCER
     Dosage: 2.5 MG
     Route: 048
     Dates: start: 20190621
  4. VITAMIN D [Suspect]
     Active Substance: VITAMIN D NOS
     Indication: OSTEOPOROSIS PROPHYLAXIS
     Dosage: UNK
     Route: 065
     Dates: start: 20190621
  5. LUTEINIZING HORMONE?RELEASING HORMONE [Suspect]
     Active Substance: GONADORELIN
     Indication: PRODUCT USED FOR UNKNOWN INDICATION
     Dosage: 3.6 MG, Q4W
     Route: 058
     Dates: start: 20190621
  6. CALCIUM [Suspect]
     Active Substance: CALCIUM
     Indication: OSTEOPOROSIS PROPHYLAXIS
     Dosage: UNK
     Route: 065
     Dates: start: 20190621

REACTIONS (8)
  - Metastases to bone [Not Recovered/Not Resolved]
  - Carcinoembryonic antigen increased [Unknown]
  - Bone lesion [Unknown]
  - Carbohydrate antigen 125 increased [Unknown]
  - Carbohydrate antigen 15-3 increased [Unknown]
  - Neutropenia [Unknown]
  - Neutrophil count decreased [Recovered/Resolved]
  - White blood cell count decreased [Recovered/Resolved]

NARRATIVE: CASE EVENT DATE: 20210510
